FAERS Safety Report 8440788-6 (Version None)
Quarter: 2012Q2

REPORT INFORMATION
  Report Type: 
  Country: None (occurrence: None)
  Receive Date: 20120615
  Receipt Date: 20120606
  Transmission Date: 20120825
  Serious: Yes (Hospitalization, Other)
  Sender: FDA-Public Use
  Company Number: US-BAYER-2012-056081

PATIENT
  Age: 34 Year
  Sex: Female
  Weight: 71.202 kg

DRUGS (8)
  1. PERCOCET [Concomitant]
     Indication: PAIN
     Dosage: 5-325MG 1-2 TABLETS EVERY 4 HOURS IF NEEDED.
     Route: 048
  2. MULTI-VITAMINS [Concomitant]
  3. CELEXA [Concomitant]
     Dosage: UNK
     Dates: start: 20100101
  4. YAZ [Suspect]
     Indication: CONTRACEPTION
     Dosage: UNK
     Dates: start: 20091002, end: 20100429
  5. TORADOL [Concomitant]
  6. ASCORBIC ACID [Concomitant]
  7. ECHINACEA [Concomitant]
  8. B COMPLEX [B3,B6,B2,B1 HCL] [Concomitant]

REACTIONS (5)
  - PULMONARY EMBOLISM [None]
  - PAIN [None]
  - INJURY [None]
  - CHEST PAIN [None]
  - DEEP VEIN THROMBOSIS [None]
